FAERS Safety Report 16852431 (Version 1)
Quarter: 2019Q3

REPORT INFORMATION
  Report Type: Spontaneous
  Country: US (occurrence: US)
  Receive Date: 20190925
  Receipt Date: 20190925
  Transmission Date: 20191005
  Serious: No
  Sender: FDA-Public Use
  Company Number: US-ASSERTIO THERAPEUTICS, INC.-US-2018DEP001886

PATIENT

DRUGS (1)
  1. GRALISE [Suspect]
     Active Substance: GABAPENTIN
     Indication: LUMBAR RADICULOPATHY
     Dosage: UNK, QD
     Route: 048
     Dates: start: 20181004, end: 2018

REACTIONS (3)
  - Product use in unapproved indication [Unknown]
  - Thinking abnormal [Unknown]
  - Disturbance in attention [Unknown]

NARRATIVE: CASE EVENT DATE: 201810
